FAERS Safety Report 13779949 (Version 1)
Quarter: 2017Q3

REPORT INFORMATION
  Report Type: Spontaneous
  Country: FR (occurrence: FR)
  Receive Date: 20170723
  Receipt Date: 20170723
  Transmission Date: 20171127
  Serious: Yes (Hospitalization)
  Sender: FDA-Public Use
  Company Number: FR-ALSI-201700218

PATIENT
  Age: 15 Year
  Sex: Female

DRUGS (1)
  1. KALINOX, 50:50, NITROUS OXIDE:OXYGEN [Suspect]
     Active Substance: NITROUS OXIDE\OXYGEN
     Indication: SICKLE CELL ANAEMIA WITH CRISIS
     Route: 055

REACTIONS (3)
  - Prescribed overdose [Recovering/Resolving]
  - Neuropathy peripheral [Recovering/Resolving]
  - Vitamin B12 decreased [Recovering/Resolving]
